FAERS Safety Report 9325975 (Version 1)
Quarter: 2013Q2

REPORT INFORMATION
  Report Type: Spontaneous
  Country: US (occurrence: None)
  Receive Date: 20130603
  Receipt Date: 20130603
  Transmission Date: 20140414
  Serious: Yes (Hospitalization)
  Sender: FDA-Public Use
  Company Number: None

PATIENT
  Age: 80 Year
  Sex: Female
  Weight: 72.58 kg

DRUGS (16)
  1. ACTONEL [Suspect]
     Indication: OSTEOPOROSIS
     Dosage: 1 TABLET WEEKLY ORAL
     Route: 048
     Dates: start: 200408, end: 20130429
  2. LOVASTATIN [Concomitant]
  3. PREMARIN [Concomitant]
  4. BENICAR HCT [Concomitant]
  5. LEXAPRO [Concomitant]
  6. OMEPRAZOLE [Concomitant]
  7. ALIGN [Concomitant]
  8. BABY ASA [Concomitant]
  9. CITRUCEL [Concomitant]
  10. BENADRYL [Concomitant]
  11. PRN-XAMAX [Concomitant]
  12. BENTYL [Concomitant]
  13. TYLENOL SINUS [Concomitant]
  14. CHLORTRIMETON [Concomitant]
  15. NAPHCONA EYE DROPS [Concomitant]
  16. TEARS [Concomitant]

REACTIONS (2)
  - Fall [None]
  - Lower limb fracture [None]
